FAERS Safety Report 4307140-6 (Version None)
Quarter: 2004Q1

REPORT INFORMATION
  Report Type: 
  Country: None (occurrence: None)
  Receive Date: 20040225
  Receipt Date: 20040209
  Transmission Date: 20041129
  Serious: Yes (Congenital Anomaly)
  Sender: FDA-Public Use
  Company Number: FR_040203573

PATIENT
  Age: 1 Day
  Sex: Male

DRUGS (2)
  1. PROZAC [Suspect]
     Dates: start: 20010901, end: 20011201
  2. LEXOMIL(BROMAZEPAM) [Concomitant]

REACTIONS (3)
  - CONGENITAL ANOMALY [None]
  - CONGENITAL BLADDER ANOMALY [None]
  - MATERNAL DRUGS AFFECTING FOETUS [None]
